FAERS Safety Report 7829327-8 (Version None)
Quarter: 2011Q4

REPORT INFORMATION
  Report Type: 
  Country: None (occurrence: None)
  Receive Date: 20111020
  Receipt Date: 20111010
  Transmission Date: 20120403
  Serious: No
  Sender: FDA-Public Use
  Company Number: GB-ABBOTT-11P-167-0838170-00

PATIENT
  Age: 52 Year
  Sex: Male

DRUGS (3)
  1. ATAZANAVIR [Concomitant]
     Indication: HIV INFECTION
     Route: 048
  2. TRUVADA [Concomitant]
     Indication: HIV INFECTION
     Route: 048
  3. RITONAVIR [Suspect]
     Indication: HIV INFECTION
     Route: 048
     Dates: start: 20100726

REACTIONS (1)
  - ARRHYTHMIA [None]
